FAERS Safety Report 5962941-3 (Version None)
Quarter: 2008Q4

REPORT INFORMATION
  Report Type: 
  Country: None (occurrence: None)
  Receive Date: 20081119
  Receipt Date: 20081107
  Transmission Date: 20090506
  Serious: Yes (Other)
  Sender: FDA-Public Use
  Company Number: 100#02#2008-05601

PATIENT
  Sex: Female

DRUGS (9)
  1. ALENDRONIC ACID (ALENDRONIC ACID) [Suspect]
     Indication: OSTEOPOROSIS
     Dosage: 70 MG/WEEK
     Route: 048
     Dates: start: 20071201, end: 20081101
  2. MULTI-VITAMINS (UNKNOWN) [Concomitant]
  3. CALCIUM (CALCIUM) [Concomitant]
  4. ZINC (ZINC) [Concomitant]
  5. OMEGA-3 (OMEGA-3) [Concomitant]
  6. VITAMIN D (COLECALCIFEROL) [Concomitant]
  7. ARNICA (ARNICA) [Concomitant]
  8. COCCULUS (COCCULUS) [Concomitant]
  9. ANTI COLD + FLU REMEDY [Concomitant]

REACTIONS (7)
  - ALTERED VISUAL DEPTH PERCEPTION [None]
  - EYE INFLAMMATION [None]
  - EYE PAIN [None]
  - HEADACHE [None]
  - NIGHT BLINDNESS [None]
  - PHOTOPHOBIA [None]
  - VISION BLURRED [None]
